FAERS Safety Report 6984725-X (Version None)
Quarter: 2010Q3

REPORT INFORMATION
  Report Type: 
  Country: None (occurrence: None)
  Receive Date: 20100915
  Receipt Date: 20100903
  Transmission Date: 20110219
  Serious: Yes (Other)
  Sender: FDA-Public Use
  Company Number: FI-TEVA-247872ISR

PATIENT
  Sex: Male

DRUGS (5)
  1. AZILECT [Suspect]
     Indication: PARKINSON'S DISEASE
     Route: 048
     Dates: start: 20100201
  2. ESCITALOPRAM [Interacting]
     Dosage: 5-10 MG
     Route: 048
     Dates: end: 20100401
  3. ATORVASTATIN CALCIUM [Interacting]
     Indication: HYPERCHOLESTEROLAEMIA
     Route: 048
  4. LEVODOPA W/CARBIDOPA [Concomitant]
     Indication: PARKINSON'S DISEASE
     Dosage: 75 MG AND 300 MG
     Route: 048
  5. ROPINIROLE HYDROCHLORIDE [Concomitant]
     Indication: PARKINSON'S DISEASE
     Route: 048

REACTIONS (3)
  - DRUG INTERACTION [None]
  - MYOSITIS [None]
  - TENDONITIS [None]
